FAERS Safety Report 19445391 (Version 2)
Quarter: 2021Q3

REPORT INFORMATION
  Report Type: Spontaneous
  Country: US (occurrence: US)
  Receive Date: 20210622
  Receipt Date: 20210701
  Transmission Date: 20211014
  Serious: No
  Sender: FDA-Public Use
  Company Number: US-SA-2021SA201863

PATIENT

DRUGS (1)
  1. SELSUN BLUE 2?IN?1 [Suspect]
     Active Substance: SELENIUM SULFIDE

REACTIONS (2)
  - Skin odour abnormal [Recovered/Resolved]
  - Product colour issue [Unknown]
